FAERS Safety Report 6274101-X (Version None)
Quarter: 2009Q3

REPORT INFORMATION
  Report Type: 
  Country: None (occurrence: None)
  Receive Date: 20090720
  Receipt Date: 20090708
  Transmission Date: 20100115
  Serious: Yes (Other)
  Sender: FDA-Public Use
  Company Number: PHHY2009FI28122

PATIENT
  Sex: Male

DRUGS (1)
  1. DIOVAN COMP [Suspect]
     Dosage: 160/25 MG

REACTIONS (2)
  - GOUT [None]
  - PAIN IN EXTREMITY [None]
